FAERS Safety Report 6260684-2 (Version None)
Quarter: 2009Q3

REPORT INFORMATION
  Report Type: 
  Country: None (occurrence: None)
  Receive Date: 20090706
  Receipt Date: 20090618
  Transmission Date: 20100115
  Serious: Yes (Hospitalization)
  Sender: FDA-Public Use
  Company Number: 2009BI019772

PATIENT
  Age: 61 Year
  Sex: Male

DRUGS (9)
  1. ZEVALIN [Suspect]
     Indication: MANTLE CELL LYMPHOMA
     Dosage: 26 MCI; 1X; IV
     Route: 042
     Dates: start: 20071026, end: 20071026
  2. SEPTRIN FORTE [Concomitant]
  3. BEMIPARINE [Concomitant]
  4. ACOVIL [Concomitant]
  5. TENORMIN [Concomitant]
  6. OMEPRAZOLE [Concomitant]
  7. NITROGLYCERIN [Concomitant]
  8. ADIRO [Concomitant]
  9. ATORVASTATIN CALCIUM [Concomitant]

REACTIONS (2)
  - ANGINA PECTORIS [None]
  - RESPIRATORY TRACT INFECTION [None]
